FAERS Safety Report 9839214 (Version 2)
Quarter: 2014Q1

REPORT INFORMATION
  Report Type: Spontaneous
  Country: CA (occurrence: CA)
  Receive Date: 20140123
  Receipt Date: 20140123
  Transmission Date: 20141002
  Serious: Yes (Hospitalization)
  Sender: FDA-Public Use
  Company Number: CA-BAXTER-2014BAX001636

PATIENT
  Age: 49 Year
  Sex: Male

DRUGS (3)
  1. ACID CONCENTRATE D12265 [Suspect]
     Indication: RENAL FAILURE
     Route: 033
     Dates: start: 2012
  2. BICARBONATE [Suspect]
     Indication: RENAL FAILURE
     Route: 033
     Dates: start: 2012
  3. EUROFER [Concomitant]
     Indication: PRODUCT USED FOR UNKNOWN INDICATION
     Route: 048

REACTIONS (1)
  - Bacterial infection [Not Recovered/Not Resolved]
